FAERS Safety Report 20839776 (Version 1)
Quarter: 2022Q2

REPORT INFORMATION
  Report Type: Spontaneous
  Country: US (occurrence: US)
  Receive Date: 20220517
  Receipt Date: 20220517
  Transmission Date: 20220721
  Serious: No
  Sender: FDA-Public Use
  Company Number: US-LUPIN PHARMACEUTICALS INC.-2022-07021

PATIENT
  Age: 75 Year
  Sex: Male

DRUGS (2)
  1. MINOCYCLINE [Suspect]
     Active Substance: MINOCYCLINE HYDROCHLORIDE
     Indication: Antibiotic therapy
     Dosage: 100 MG, BID (EVERY 12 HOURS)
     Route: 048
  2. MINOCYCLINE [Suspect]
     Active Substance: MINOCYCLINE HYDROCHLORIDE
     Indication: Device related infection

REACTIONS (2)
  - Skin hyperpigmentation [Not Recovered/Not Resolved]
  - Scleral pigmentation [Not Recovered/Not Resolved]
